FAERS Safety Report 26145499 (Version 1)
Quarter: 2025Q4

REPORT INFORMATION
  Report Type: Spontaneous
  Country: US (occurrence: None)
  Receive Date: 20251210
  Receipt Date: 20251210
  Transmission Date: 20260117
  Serious: Yes (Life-Threatening, Hospitalization)
  Sender: FDA-CTU
  Company Number: None

PATIENT
  Age: 65 Year
  Sex: Female
  Weight: 96.3 kg

DRUGS (7)
  1. LEFLUNOMIDE [Suspect]
     Active Substance: LEFLUNOMIDE
     Indication: Rheumatoid arthritis
     Dosage: 1 TABLET DAILY ORAL
     Route: 048
     Dates: start: 20250609, end: 20251014
  2. Amiodipine [Concomitant]
  3. LOSARTAN [Concomitant]
     Active Substance: LOSARTAN
  4. ACYCLOVIR [Concomitant]
     Active Substance: ACYCLOVIR
  5. SCHIFF MOVE FREE [Concomitant]
     Active Substance: DIETARY SUPPLEMENT
  6. Semaine Urinary Tract Cleasnse + Protect [Concomitant]
  7. Rexall [Concomitant]

REACTIONS (2)
  - Laboratory test abnormal [None]
  - Cerebrovascular accident [None]

NARRATIVE: CASE EVENT DATE: 20251019
